FAERS Safety Report 10129281 (Version 1)
Quarter: 2014Q2

REPORT INFORMATION
  Report Type: Report from Study
  Country: US (occurrence: US)
  Receive Date: 20140428
  Receipt Date: 20140428
  Transmission Date: 20141212
  Serious: No
  Sender: FDA-Public Use
  Company Number: US-ABBVIE-14P-163-1208816-00

PATIENT
  Age: 62 Year
  Sex: Male
  Weight: 89.89 kg

DRUGS (7)
  1. ANDROGEL [Suspect]
     Indication: BLOOD TESTOSTERONE DECREASED
     Dosage: 4 PUMPS DAILY
     Route: 061
     Dates: start: 2011
  2. ANDROGEL [Suspect]
     Indication: HYPOTHALAMO-PITUITARY DISORDER
     Dosage: 6 PUMPS DAILY
     Route: 061
     Dates: end: 201306
  3. ANDROGEL [Suspect]
     Dosage: 8 PUMPS DAILY
     Route: 061
     Dates: start: 201306
  4. ANDROGEL [Suspect]
     Indication: BLOOD TESTOSTERONE DECREASED
     Dosage: STARTING DOSE WAS UNKNOWN
     Route: 061
     Dates: start: 1999
  5. ANDROGEL [Suspect]
     Dosage: 10 PUMPS DAILY
     Route: 061
     Dates: end: 2011
  6. BISOPROLOL [Concomitant]
     Indication: HYPERTENSION
     Route: 048
  7. ABENA [Concomitant]
     Indication: ANDROGEN REPLACEMENT THERAPY

REACTIONS (1)
  - Blood testosterone decreased [Not Recovered/Not Resolved]
